FAERS Safety Report 6084661-X (Version None)
Quarter: 2009Q1

REPORT INFORMATION
  Report Type: 
  Country: None (occurrence: None)
  Receive Date: 20090219
  Receipt Date: 20090209
  Transmission Date: 20090719
  Serious: Yes (Death)
  Sender: FDA-Public Use
  Company Number: JP-ABBOTT-09P-087-0557943-00

PATIENT
  Age: 82 Year
  Sex: Male

DRUGS (4)
  1. LEUPROLIDE ACETATE [Suspect]
     Indication: PROSTATE CANCER STAGE IV
     Route: 058
     Dates: start: 20070125, end: 20080912
  2. ESTRACYT [Concomitant]
     Indication: PROSTATE CANCER STAGE IV
     Route: 048
     Dates: start: 20080811, end: 20080912
  3. CASODEX [Concomitant]
     Indication: PROSTATE CANCER STAGE IV
     Dates: start: 20070123, end: 20080810
  4. TAMSULOSIN HCL [Concomitant]
     Indication: BENIGN PROSTATIC HYPERPLASIA
     Route: 048
     Dates: end: 20080927

REACTIONS (1)
  - PROSTATE CANCER [None]
